FAERS Safety Report 7207906-9 (Version None)
Quarter: 2011Q1

REPORT INFORMATION
  Report Type: 
  Country: None (occurrence: None)
  Receive Date: 20110104
  Receipt Date: 20101222
  Transmission Date: 20110831
  Serious: Yes (Other)
  Sender: FDA-Public Use
  Company Number: GB-JNJFOC-20101100919

PATIENT
  Age: 60 Year
  Sex: Female

DRUGS (5)
  1. BETAHISTINE [Suspect]
     Indication: PRODUCT USED FOR UNKNOWN INDICATION
     Route: 065
  2. CITALOPRAM HYDROBROMIDE [Suspect]
     Indication: PRODUCT USED FOR UNKNOWN INDICATION
     Route: 065
  3. OMEPRAZOLE [Suspect]
     Indication: GASTRITIS
     Route: 065
  4. TRAMADOL HYDROCHLORIDE [Suspect]
     Indication: PRODUCT USED FOR UNKNOWN INDICATION
     Route: 048
  5. OMEPRAZOLE [Suspect]
     Route: 065

REACTIONS (2)
  - TUBULOINTERSTITIAL NEPHRITIS [None]
  - RENAL FAILURE CHRONIC [None]
